FAERS Safety Report 18130908 (Version 1)
Quarter: 2020Q3

REPORT INFORMATION
  Report Type: Spontaneous
  Country: GB (occurrence: GB)
  Receive Date: 20200810
  Receipt Date: 20200810
  Transmission Date: 20201103
  Serious: Yes (Other)
  Sender: FDA-Public Use
  Company Number: GB-SUN PHARMACEUTICAL INDUSTRIES LTD-2020RR-256365

PATIENT
  Age: 36 Year
  Sex: Female

DRUGS (6)
  1. CALCIUM CARBONATE. [Suspect]
     Active Substance: CALCIUM CARBONATE
     Indication: HYPERTENSION
     Dosage: 1500 MILLIGRAM, UNK
     Route: 065
  2. ASPIRIN. [Suspect]
     Active Substance: ASPIRIN
     Indication: ANTISYNTHETASE SYNDROME
     Dosage: AT NIGHT
     Route: 065
  3. AZATHIOPRINE. [Suspect]
     Active Substance: AZATHIOPRINE
     Indication: ANTISYNTHETASE SYNDROME
     Dosage: 125 MILLIGRAM, DAILY
     Route: 065
  4. SERTRALINE [Suspect]
     Active Substance: SERTRALINE HYDROCHLORIDE
     Indication: ANTISYNTHETASE SYNDROME
     Dosage: 50 MILLIGRAM, DAILY
     Route: 065
  5. VITAMIN D3 [Suspect]
     Active Substance: CHOLECALCIFEROL
     Indication: HYPERTENSION
     Dosage: 400 INTERNATIONAL UNIT, UNK
     Route: 065
  6. PREDNISOLONE. [Suspect]
     Active Substance: PREDNISOLONE
     Indication: ANTISYNTHETASE SYNDROME
     Dosage: 5 MILLIGRAM, UNK
     Route: 065

REACTIONS (1)
  - Exposure during pregnancy [Unknown]
